FAERS Safety Report 9631306 (Version 1)
Quarter: 2013Q4

REPORT INFORMATION
  Report Type: Spontaneous
  Country: TR (occurrence: None)
  Receive Date: 20131015
  Receipt Date: 20131015
  Transmission Date: 20140711
  Serious: Yes (Death, Other)
  Sender: FDA-Public Use
  Company Number: TR-MACLEODS PHARMA-000155

PATIENT
  Age: 53 Year
  Sex: Female

DRUGS (1)
  1. LEVOFLOXACIN (LEVOFLOXACIN) [Suspect]
     Indication: BRONCHOPNEUMONIA

REACTIONS (9)
  - Hepatitis toxic [None]
  - Multi-organ failure [None]
  - Pruritus [None]
  - Erythema [None]
  - Rash [None]
  - Skin exfoliation [None]
  - Abdominal pain [None]
  - Vomiting [None]
  - Cardio-respiratory arrest [None]
